FAERS Safety Report 5726801-5 (Version None)
Quarter: 2008Q2

REPORT INFORMATION
  Report Type: 
  Country: None (occurrence: None)
  Receive Date: 20080502
  Receipt Date: 20080425
  Transmission Date: 20081010
  Serious: Yes (Death, Life-Threatening, Other)
  Sender: FDA-Public Use
  Company Number: GB-PFIZER INC-2008030540

PATIENT
  Sex: Female

DRUGS (8)
  1. LIPITOR [Suspect]
     Indication: ANGIOPLASTY
     Route: 048
  2. LIPITOR [Suspect]
     Indication: STENT PLACEMENT
  3. CYCLOSPORINE [Concomitant]
     Route: 048
  4. FUROSEMIDE [Concomitant]
     Route: 048
  5. PREDNISOLONE [Concomitant]
     Route: 048
  6. CLOPIDOGREL [Concomitant]
     Route: 048
  7. ASPIRIN [Concomitant]
     Route: 048
  8. OMEPRAZOLE [Concomitant]

REACTIONS (3)
  - INTESTINAL INFARCTION [None]
  - RHABDOMYOLYSIS [None]
  - SKIN ULCER [None]
